FAERS Safety Report 23021151 (Version 1)
Quarter: 2023Q4

REPORT INFORMATION
  Report Type: Other
  Country: CN (occurrence: CN)
  Receive Date: 20231003
  Receipt Date: 20231003
  Transmission Date: 20240110
  Serious: Yes (Other)
  Sender: FDA-Public Use
  Company Number: CN-GE HEALTHCARE-2023CSU008656

PATIENT
  Age: 45 Year
  Sex: Male
  Weight: 62 kg

DRUGS (2)
  1. OMNIPAQUE [Suspect]
     Active Substance: IOHEXOL
     Indication: Computerised tomogram
     Dosage: 80 ML, SINGLE
     Route: 042
     Dates: start: 20230918, end: 20230918
  2. OMNIPAQUE [Suspect]
     Active Substance: IOHEXOL
     Indication: Hepatic cancer

REACTIONS (4)
  - Nasal obstruction [Recovering/Resolving]
  - Rash [Recovering/Resolving]
  - Erythema [Recovering/Resolving]
  - Pruritus [Recovering/Resolving]

NARRATIVE: CASE EVENT DATE: 20230918
